FAERS Safety Report 17672716 (Version 2)
Quarter: 2020Q2

REPORT INFORMATION
  Report Type: Report from Study
  Country: DE (occurrence: DE)
  Receive Date: 20200415
  Receipt Date: 20200507
  Transmission Date: 20200713
  Serious: Yes (Other)
  Sender: FDA-Public Use
  Company Number: DE-MYLANLABS-2020M1038256

PATIENT
  Sex: Female
  Weight: 46 kg

DRUGS (2)
  1. ANASTROZOLE. [Suspect]
     Active Substance: ANASTROZOLE
     Indication: BREAST CANCER METASTATIC
     Dosage: SCHEMA 21 DAYS INTAKE,7DAYS PAUSE [FREQUENCY POSSIBLY INTERCHANGED WITH KISQALI)
     Route: 048
     Dates: start: 20191001
  2. KISQALI [Suspect]
     Active Substance: RIBOCICLIB
     Indication: BREAST CANCER METASTATIC
     Dosage: 600 MG,QD(FREQUENCY POSSIBLY INTERCHANGED WITH ANASTRO)
     Route: 048
     Dates: start: 20191001

REACTIONS (2)
  - Hyperthyroidism [Not Recovered/Not Resolved]
  - Thyroid mass [Unknown]

NARRATIVE: CASE EVENT DATE: 202001
